FAERS Safety Report 4623124-2 (Version None)
Quarter: 2005Q1

REPORT INFORMATION
  Report Type: 
  Country: None (occurrence: None)
  Receive Date: 20050328
  Receipt Date: 20050328
  Transmission Date: 20050727
  Serious: Yes (Death)
  Sender: FDA-Public Use
  Company Number: None

PATIENT
  Sex: Female
  Weight: 9.9 kg

DRUGS (4)
  1. VINCRISTINE [Suspect]
     Dosage: 0.022 MG/KG/24 HR IV OVER 72 HRS
     Route: 042
     Dates: start: 20040928
  2. CYCLOPHOSPHAMIDE [Suspect]
     Dosage: 70 MG/KG/DOSE WITH MESNA IV OVER 6 HRS
     Route: 042
  3. DOXORUBICIN [Suspect]
     Dosage: 0.83 MG/KG/24 HRS IV OVER 72 HRS
     Route: 042
  4. MESNA [Suspect]
     Dosage: 15 MG/KG/DOSE IV
     Route: 042

REACTIONS (7)
  - ATELECTASIS [None]
  - BLOOD BILIRUBIN INCREASED [None]
  - BLOOD LACTATE DEHYDROGENASE INCREASED [None]
  - PNEUMOTHORAX [None]
  - PULMONARY OEDEMA [None]
  - RENAL DISORDER [None]
  - RENAL FAILURE ACUTE [None]
